FAERS Safety Report 22973329 (Version 3)
Quarter: 2023Q4

REPORT INFORMATION
  Report Type: Spontaneous
  Country: DE (occurrence: DE)
  Receive Date: 20230922
  Receipt Date: 20231226
  Transmission Date: 20240110
  Serious: Yes (Other)
  Sender: FDA-Public Use
  Company Number: DE-BAYER-2023A133324

PATIENT
  Age: 70 Year
  Sex: Female

DRUGS (2)
  1. XARELTO [Suspect]
     Active Substance: RIVAROXABAN
     Indication: Coagulopathy
     Dosage: 20 MG, UNK
     Route: 048
  2. OLIGOMERIC PROANTHOCYANIDIN [Concomitant]

REACTIONS (7)
  - Thrombosis [Recovered/Resolved]
  - Therapeutic product effect increased [Recovered/Resolved]
  - Sepsis [Recovered/Resolved]
  - Renal failure [Recovered/Resolved]
  - Carotid artery thrombosis [Recovered/Resolved]
  - Hepatic vascular thrombosis [Recovered/Resolved]
  - Poor peripheral circulation [Recovered/Resolved]
